FAERS Safety Report 23458216 (Version 2)
Quarter: 2024Q2

REPORT INFORMATION
  Report Type: Spontaneous
  Country: JP (occurrence: JP)
  Receive Date: 20240130
  Receipt Date: 20240429
  Transmission Date: 20240716
  Serious: Yes (Other)
  Sender: FDA-Public Use
  Company Number: JP-ONO-2024JP001595

PATIENT
  Age: 80 Year
  Sex: Male

DRUGS (2)
  1. OPDIVO [Suspect]
     Active Substance: NIVOLUMAB
     Indication: Metastatic renal cell carcinoma
     Dosage: UNK
     Route: 041
  2. CABOZANTINIB S-MALATE [Suspect]
     Active Substance: CABOZANTINIB S-MALATE
     Indication: Metastatic renal cell carcinoma
     Dosage: UNK

REACTIONS (4)
  - Pemphigoid [Not Recovered/Not Resolved]
  - Renal impairment [Unknown]
  - Drug eruption [Not Recovered/Not Resolved]
  - Pruritus [Not Recovered/Not Resolved]
